FAERS Safety Report 10250077 (Version 1)
Quarter: 2014Q2

REPORT INFORMATION
  Report Type: Spontaneous
  Country: US (occurrence: US)
  Receive Date: 20140620
  Receipt Date: 20140620
  Transmission Date: 20141212
  Serious: Yes (Other)
  Sender: FDA-Public Use
  Company Number: US-BRISTOL-MYERS SQUIBB COMPANY-20635306

PATIENT
  Age: 6 Decade
  Sex: Female

DRUGS (2)
  1. ELIQUIS [Suspect]
     Dosage: 1 DF : 2.5 UNITS NOS.
  2. DIFLUCAN [Suspect]

REACTIONS (3)
  - Eye haemorrhage [Unknown]
  - Mouth haemorrhage [Unknown]
  - Epistaxis [Unknown]
